FAERS Safety Report 23409578 (Version 2)
Quarter: 2024Q2

REPORT INFORMATION
  Report Type: Spontaneous
  Country: IT (occurrence: IT)
  Receive Date: 20240117
  Receipt Date: 20240512
  Transmission Date: 20240716
  Serious: Yes (Other)
  Sender: FDA-Public Use
  Company Number: IT-AstraZeneca-CH-00542991A

PATIENT
  Sex: Male

DRUGS (2)
  1. ULTOMIRIS [Suspect]
     Active Substance: RAVULIZUMAB-CWVZ
     Indication: Paroxysmal nocturnal haemoglobinuria
     Dosage: UNK
     Route: 065
  2. SOLIRIS [Suspect]
     Active Substance: ECULIZUMAB
     Indication: Paroxysmal nocturnal haemoglobinuria
     Dosage: UNK
     Route: 065

REACTIONS (2)
  - Breakthrough haemolysis [Recovered/Resolved]
  - Drug ineffective [Unknown]
